FAERS Safety Report 7492042-7 (Version None)
Quarter: 2011Q2

REPORT INFORMATION
  Report Type: 
  Country: None (occurrence: None)
  Receive Date: 20110518
  Receipt Date: 20110518
  Transmission Date: 20111010
  Serious: No
  Sender: FDA-Public Use
  Company Number: None

PATIENT
  Age: 51 Year
  Sex: Female
  Weight: 56 kg

DRUGS (2)
  1. BOTOX [Suspect]
  2. BOTOX [Suspect]
     Indication: SKIN WRINKLING
     Dosage: 58 UNITS 2 ID
     Route: 023
     Dates: start: 20110422, end: 20110429

REACTIONS (1)
  - DRUG INEFFECTIVE [None]
